FAERS Safety Report 9742095 (Version 1)
Quarter: 2013Q4

REPORT INFORMATION
  Report Type: Report from Study
  Country: PL (occurrence: PL)
  Receive Date: 20131210
  Receipt Date: 20131210
  Transmission Date: 20140711
  Serious: Yes (Life-Threatening)
  Sender: FDA-Public Use
  Company Number: PL-PFIZER INC-2013349134

PATIENT
  Age: 38 Year
  Sex: Male
  Weight: 114 kg

DRUGS (1)
  1. TOFACITINIB CITRATE [Suspect]
     Indication: PSORIASIS
     Dosage: 10 MG, 2X/DAY
     Route: 048
     Dates: start: 20110916, end: 20130927

REACTIONS (1)
  - Oligodendroglioma [Not Recovered/Not Resolved]
